FAERS Safety Report 18593829 (Version 1)
Quarter: 2020Q4

REPORT INFORMATION
  Report Type: Spontaneous
  Country: GB (occurrence: GB)
  Receive Date: 20201209
  Receipt Date: 20201209
  Transmission Date: 20210114
  Serious: Yes (Hospitalization)
  Sender: FDA-Public Use
  Company Number: GB-TEVA-2020-GB-1855443

PATIENT
  Age: 65 Year
  Sex: Female
  Weight: 86 kg

DRUGS (12)
  1. MONTELUKAST [Suspect]
     Active Substance: MONTELUKAST SODIUM
     Indication: ASTHMA
     Dosage: 10 MILLIGRAM DAILY; AT NIGHT
     Route: 048
  2. SALBUTAMOL [Suspect]
     Active Substance: ALBUTEROL
     Indication: ASTHMA
     Dosage: 10 MG ,AND AS REQUIRED.
     Route: 055
  3. TIOTROPIUM [Suspect]
     Active Substance: TIOTROPIUM
     Indication: CHRONIC OBSTRUCTIVE PULMONARY DISEASE
     Dosage: 5 MICROGRAM DAILY; EVERY MORNING
     Route: 055
  4. CYCLIZINE [Suspect]
     Active Substance: CYCLIZINE
     Indication: NAUSEA
     Dosage: 150 MILLIGRAM DAILY; THREE TIMES A DAY.
     Route: 048
  5. CARBOCISTEINE [Suspect]
     Active Substance: CARBOCYSTEINE
     Indication: CHRONIC OBSTRUCTIVE PULMONARY DISEASE
     Dosage: 1500 MG
     Route: 048
  6. FOLIC ACID. [Suspect]
     Active Substance: FOLIC ACID
     Dosage: 5 MG
     Route: 048
  7. THEOPHYLLINE [Suspect]
     Active Substance: THEOPHYLLINE ANHYDROUS
     Dosage: 400 MG, TO BE CONTINUED FOR 4 DAYS BEFORE THEOPHYLLINE LEVELS ARE TAKEN AGAIN.
     Route: 048
     Dates: start: 20201108
  8. TOLTERODINE [Suspect]
     Active Substance: TOLTERODINE
     Indication: MICTURITION URGENCY
     Dosage: 4 MILLIGRAM DAILY; EVERY MORNING
     Route: 048
  9. VANCOMYCIN [Suspect]
     Active Substance: VANCOMYCIN
     Indication: CLOSTRIDIUM DIFFICILE INFECTION
     Dosage: 2000 MG
     Route: 048
     Dates: start: 20200929, end: 20201013
  10. SALBUTAMOL [Suspect]
     Active Substance: ALBUTEROL
     Indication: ASTHMA
     Dosage: 800MCG
     Route: 055
  11. FOSTAIR [Suspect]
     Active Substance: BECLOMETHASONE\FORMOTEROL
     Indication: ASTHMA
     Dosage: 4 DOSAGE FORMS ,PUFFS
     Route: 055
  12. THEOPHYLLINE [Suspect]
     Active Substance: THEOPHYLLINE ANHYDROUS
     Indication: CHRONIC OBSTRUCTIVE PULMONARY DISEASE
     Dosage: 1200 MG ,WITHDRAWN FOR 48 HOURS, RESTARTED AT 200MG TWICE DAILY.
     Route: 048
     Dates: end: 20201106

REACTIONS (5)
  - Dehydration [Unknown]
  - Sinus tachycardia [Recovered/Resolved]
  - Palpitations [Unknown]
  - Vomiting [Recovering/Resolving]
  - Diarrhoea [Recovering/Resolving]

NARRATIVE: CASE EVENT DATE: 20200929
